FAERS Safety Report 8509409-8 (Version None)
Quarter: 2012Q3

REPORT INFORMATION
  Report Type: 
  Country: None (occurrence: None)
  Receive Date: 20120713
  Receipt Date: 20120711
  Transmission Date: 20120928
  Serious: Yes (Hospitalization, Other)
  Sender: FDA-Public Use
  Company Number: BE-ROCHE-1087348

PATIENT
  Sex: Male
  Weight: 90 kg

DRUGS (2)
  1. VEMURAFENIB [Suspect]
     Indication: METASTATIC MALIGNANT MELANOMA
     Route: 048
     Dates: start: 20120511, end: 20120711
  2. PARACODIN BITARTRATE TAB [Concomitant]
     Indication: COUGH
     Route: 048

REACTIONS (1)
  - CEREBROVASCULAR ACCIDENT [None]
